FAERS Safety Report 10369773 (Version 2)
Quarter: 2014Q3

REPORT INFORMATION
  Report Type: Spontaneous
  Country: US (occurrence: US)
  Receive Date: 20140808
  Receipt Date: 20140808
  Transmission Date: 20150326
  Serious: Yes (Hospitalization, Disabling, Other)
  Sender: FDA-Public Use
  Company Number: US-009507513-2011SP019418

PATIENT
  Sex: Female
  Weight: 70.31 kg

DRUGS (4)
  1. NUVARING [Suspect]
     Active Substance: ETHINYL ESTRADIOL\ETONOGESTREL
     Indication: MENORRHAGIA
  2. NUVARING [Suspect]
     Active Substance: ETHINYL ESTRADIOL\ETONOGESTREL
     Indication: MENSTRUAL CYCLE MANAGEMENT
     Dosage: UNK
     Route: 067
     Dates: start: 20080313, end: 20080526
  3. NUVARING [Suspect]
     Active Substance: ETHINYL ESTRADIOL\ETONOGESTREL
     Indication: DYSMENORRHOEA
  4. NUVARING [Suspect]
     Active Substance: ETHINYL ESTRADIOL\ETONOGESTREL
     Indication: PELVIC PAIN

REACTIONS (8)
  - Haemoglobin decreased [Unknown]
  - Protein C decreased [Unknown]
  - Dyslipidaemia [Unknown]
  - Off label use [Unknown]
  - Neck pain [Unknown]
  - Cerebral infarction [Recovered/Resolved with Sequelae]
  - Mental disorder [Unknown]
  - Meningioma [Unknown]

NARRATIVE: CASE EVENT DATE: 20080526
